FAERS Safety Report 4337832-4 (Version None)
Quarter: 2004Q1

REPORT INFORMATION
  Report Type: 
  Country: None (occurrence: None)
  Receive Date: 20040326
  Receipt Date: 20030225
  Transmission Date: 20041129
  Serious: Yes (Hospitalization)
  Sender: FDA-Public Use
  Company Number: 2003UW02534

PATIENT
  Age: 82 Year
  Sex: Female

DRUGS (16)
  1. ZESTRIL [Suspect]
     Dates: start: 20021216, end: 20021220
  2. TEQUIN [Suspect]
     Dates: start: 20021218, end: 20021229
  3. QUINAPRIL HCL [Suspect]
     Dates: start: 20021226, end: 20021229
  4. COREG [Suspect]
     Indication: CARDIAC FAILURE CONGESTIVE
     Dosage: 6.25 MG DAILY PO
     Route: 048
     Dates: start: 20021217, end: 20030102
  5. AVANDIA [Concomitant]
  6. GLUCOTROL [Concomitant]
  7. POTASSIUM CHLORIDE [Concomitant]
  8. LASIX [Concomitant]
  9. COLACE [Concomitant]
  10. ALDACTONE [Concomitant]
  11. LOPRESSOR [Concomitant]
  12. ASPIRIN [Concomitant]
  13. ONDANSETRON HCL [Concomitant]
  14. MAGNESIUM GLUCONATE [Concomitant]
  15. ZAROXOLYN [Concomitant]
  16. DIGOXIN [Concomitant]

REACTIONS (1)
  - THROMBOCYTOPENIA [None]
